FAERS Safety Report 8050677-7 (Version None)
Quarter: 2012Q1

REPORT INFORMATION
  Report Type: 
  Country: None (occurrence: None)
  Receive Date: 20120117
  Receipt Date: 20120117
  Transmission Date: 20120608
  Serious: No
  Sender: FDA-Public Use
  Company Number: None

PATIENT
  Age: 41 Year
  Sex: Female
  Weight: 61.234 kg

DRUGS (1)
  1. LAMOTRIGINE [Suspect]
     Indication: BIPOLAR II DISORDER
     Dates: start: 20060501, end: 20120114

REACTIONS (6)
  - FEELING ABNORMAL [None]
  - POOR QUALITY SLEEP [None]
  - WITHDRAWAL SYNDROME [None]
  - HALLUCINATION [None]
  - NIGHTMARE [None]
  - DEPRESSION [None]
